FAERS Safety Report 15438953 (Version 1)
Quarter: 2018Q3

REPORT INFORMATION
  Report Type: Spontaneous
  Country: DE (occurrence: DE)
  Receive Date: 20180928
  Receipt Date: 20180928
  Transmission Date: 20181010
  Serious: Yes (Other)
  Sender: FDA-Public Use
  Company Number: DE-AUROBINDO-AUR-APL-2018-047605

PATIENT
  Age: 23 Year
  Sex: Female

DRUGS (3)
  1. MAXIM                              /01257001/ [Interacting]
     Active Substance: DIENOGEST\ETHINYL ESTRADIOL
     Indication: PRODUCT USED FOR UNKNOWN INDICATION
     Dosage: 1 DOSAGE FORM, DAILY
     Route: 048
  2. LAMOTRIGINE. [Suspect]
     Active Substance: LAMOTRIGINE
     Indication: EPILEPSY
     Dosage: UNK
     Route: 065
  3. LAMOTRIGINE. [Interacting]
     Active Substance: LAMOTRIGINE
     Dosage: FOR YEARS ()
     Route: 048

REACTIONS (2)
  - Drug interaction [Unknown]
  - Epilepsy [Unknown]
